FAERS Safety Report 22120720 (Version 2)
Quarter: 2023Q1

REPORT INFORMATION
  Report Type: Spontaneous
  Country: US (occurrence: US)
  Receive Date: 20230321
  Receipt Date: 20230327
  Transmission Date: 20230417
  Serious: No
  Sender: FDA-Public Use
  Company Number: US-002147023-NVSC2023US064481

PATIENT
  Sex: Male

DRUGS (1)
  1. HYDROCORTISONE\NEOMYCIN SULFATE\POLYMYXIN B SULFATE [Suspect]
     Active Substance: HYDROCORTISONE\NEOMYCIN SULFATE\POLYMYXIN B SULFATE
     Indication: Ear infection
     Dosage: 1 %, 4 DROPS IN LEFT EAR/QID, 10 ML  SSP
     Route: 001
     Dates: start: 20220825

REACTIONS (4)
  - Ear discomfort [Unknown]
  - Ear pain [Unknown]
  - Product dispensing error [Unknown]
  - Expired product administered [Unknown]
